FAERS Safety Report 7083331-9 (Version None)
Quarter: 2010Q4

REPORT INFORMATION
  Report Type: 
  Country: None (occurrence: None)
  Receive Date: 20101104
  Receipt Date: 20101026
  Transmission Date: 20110411
  Serious: Yes (Hospitalization, Other)
  Sender: FDA-Public Use
  Company Number: PHHY2010US67858

PATIENT
  Sex: Female

DRUGS (5)
  1. EXJADE [Suspect]
     Indication: THALASSAEMIA
     Dosage: 1000 MG DAILY
     Route: 048
     Dates: start: 20100712, end: 20101004
  2. PREVACID [Concomitant]
  3. FOSAMAX [Concomitant]
     Route: 048
  4. VITAMIN D [Concomitant]
     Route: 048
  5. FOLIC ACID [Concomitant]
     Route: 048

REACTIONS (5)
  - HYPERBILIRUBINAEMIA [None]
  - JAUNDICE [None]
  - LIVER FUNCTION TEST ABNORMAL [None]
  - MALAISE [None]
  - SPLENOMEGALY [None]
